FAERS Safety Report 12549578 (Version 1)
Quarter: 2016Q3

REPORT INFORMATION
  Report Type: Spontaneous
  Country: JP (occurrence: JP)
  Receive Date: 20160712
  Receipt Date: 20160712
  Transmission Date: 20161109
  Serious: Yes (Other)
  Sender: FDA-Public Use
  Company Number: JP-ELI_LILLY_AND_COMPANY-JP201607001013

PATIENT

DRUGS (10)
  1. HUMALOG [Suspect]
     Active Substance: INSULIN LISPRO
     Indication: FULMINANT TYPE 1 DIABETES MELLITUS
     Route: 067
  2. HUMULIN R [Suspect]
     Active Substance: INSULIN HUMAN
     Indication: FULMINANT TYPE 1 DIABETES MELLITUS
     Route: 067
  3. HUMULIN R [Suspect]
     Active Substance: INSULIN HUMAN
     Indication: FULMINANT TYPE 1 DIABETES MELLITUS
     Route: 067
  4. HUMALOG [Suspect]
     Active Substance: INSULIN LISPRO
     Indication: FULMINANT TYPE 1 DIABETES MELLITUS
     Route: 067
  5. INSULIN DETEMIR [Concomitant]
     Active Substance: INSULIN DETEMIR
     Indication: FULMINANT TYPE 1 DIABETES MELLITUS
     Route: 067
  6. HUMULIN R [Suspect]
     Active Substance: INSULIN HUMAN
     Indication: FULMINANT TYPE 1 DIABETES MELLITUS
     Route: 067
  7. INSULIN DETEMIR [Concomitant]
     Active Substance: INSULIN DETEMIR
     Indication: FULMINANT TYPE 1 DIABETES MELLITUS
     Route: 067
  8. HUMULIN R [Suspect]
     Active Substance: INSULIN HUMAN
     Indication: FULMINANT TYPE 1 DIABETES MELLITUS
     Route: 067
  9. HUMULIN N [Suspect]
     Active Substance: INSULIN HUMAN
     Indication: FULMINANT TYPE 1 DIABETES MELLITUS
     Route: 067
  10. HUMULIN N [Suspect]
     Active Substance: INSULIN HUMAN
     Indication: FULMINANT TYPE 1 DIABETES MELLITUS
     Route: 067

REACTIONS (4)
  - Neonatal asphyxia [Recovered/Resolved]
  - Foetal exposure during pregnancy [Unknown]
  - Large for dates baby [Unknown]
  - Jaundice neonatal [Recovering/Resolving]
